FAERS Safety Report 19472055 (Version 1)
Quarter: 2021Q2

REPORT INFORMATION
  Report Type: Spontaneous
  Country: US (occurrence: US)
  Receive Date: 20210629
  Receipt Date: 20210629
  Transmission Date: 20210717
  Serious: Yes (Other)
  Sender: FDA-Public Use
  Company Number: US-ASTRAZENECA-2021A558301

PATIENT
  Sex: Female

DRUGS (1)
  1. OLAPARIB. [Suspect]
     Active Substance: OLAPARIB
     Indication: BREAST CANCER METASTATIC
     Route: 048

REACTIONS (4)
  - Metastases to liver [Recovering/Resolving]
  - Drug resistance [Unknown]
  - Acquired gene mutation [Unknown]
  - Malignant neoplasm progression [Unknown]
